FAERS Safety Report 5108751-0 (Version None)
Quarter: 2006Q3

REPORT INFORMATION
  Report Type: 
  Country: None (occurrence: None)
  Receive Date: 20060920
  Receipt Date: 20060911
  Transmission Date: 20061208
  Serious: Yes (Death, Other)
  Sender: FDA-Public Use
  Company Number: GB-JNJFOC-20060902309

PATIENT
  Sex: Female
  Weight: 62 kg

DRUGS (12)
  1. REMICADE [Suspect]
     Indication: RHEUMATOID ARTHRITIS
     Route: 042
  2. METHOTREXATE [Concomitant]
     Route: 065
  3. AMITRIPTYLINE HCL [Concomitant]
     Route: 065
  4. BECOTIDE [Concomitant]
     Route: 065
  5. CALCICHEW [Concomitant]
     Route: 065
  6. CELEBREX [Concomitant]
     Route: 065
  7. CELECOXIB [Concomitant]
     Route: 065
  8. ACETAMINOPHEN W/ CODEINE [Concomitant]
     Route: 065
  9. FOLIC ACID [Concomitant]
     Route: 065
  10. GAVISCON [Concomitant]
     Route: 065
  11. LACTULOSE [Concomitant]
     Route: 065
  12. ALBUTEROL SPIROS [Concomitant]
     Route: 065

REACTIONS (1)
  - DEATH [None]
